FAERS Safety Report 8236617-6 (Version None)
Quarter: 2012Q1

REPORT INFORMATION
  Report Type: 
  Country: None (occurrence: None)
  Receive Date: 20120309
  Receipt Date: 20110607
  Transmission Date: 20120608
  Serious: Yes (Hospitalization)
  Sender: FDA-Public Use
  Company Number: PHHY2011US51906

PATIENT
  Age: 26 Year
  Sex: Female

DRUGS (14)
  1. PREGABALIN (PREGABABLIN) [Concomitant]
  2. INTERFERON BETA-1A [Concomitant]
  3. LEVETIRACETAM [Concomitant]
  4. NAPROXEN [Concomitant]
  5. NATALIZUMAB (NATALIZUMAB) [Concomitant]
  6. OXCARBAZEPINE [Concomitant]
  7. CARBAMAZEPINE [Concomitant]
  8. TOPIRAMATE [Concomitant]
  9. IBUPROFEN [Concomitant]
  10. EXTAVIA [Suspect]
     Dosage: SUBCUTANEOUS
     Route: 058
  11. ETHINYL ESTRADIOL W/NORGESTREL (ETHINYLESTRADIOL,NORGESTREL) [Concomitant]
  12. CLONAZEPAM [Concomitant]
  13. DULOXETINE HYDROCHLORIDE [Concomitant]
  14. DIVALPROEX SODIUM [Concomitant]

REACTIONS (1)
  - MULTIPLE SCLEROSIS RELAPSE [None]
